FAERS Safety Report 5516700-6 (Version None)
Quarter: 2007Q4

REPORT INFORMATION
  Report Type: 
  Country: None (occurrence: None)
  Receive Date: 20071114
  Receipt Date: 20070424
  Transmission Date: 20080405
  Serious: No
  Sender: FDA-Public Use
  Company Number: A0648348A

PATIENT
  Age: 63 Year
  Sex: Male

DRUGS (9)
  1. COMMIT [Suspect]
  2. METFORMIN HCL [Concomitant]
  3. HYZAAR [Concomitant]
  4. NORVASC [Concomitant]
  5. OMEPRAZOLE [Concomitant]
  6. POTASSIUM CL [Concomitant]
  7. PLAVIX [Concomitant]
  8. LIPITOR [Concomitant]
  9. ONE-A-DAY MEN'S VITAMINS [Concomitant]

REACTIONS (2)
  - HAEMOPTYSIS [None]
  - INTENTIONAL DRUG MISUSE [None]
